FAERS Safety Report 25849648 (Version 2)
Quarter: 2025Q3

REPORT INFORMATION
  Report Type: Spontaneous
  Country: US (occurrence: US)
  Receive Date: 20250926
  Receipt Date: 20250930
  Transmission Date: 20251021
  Serious: Yes (Other)
  Sender: ABBVIE
  Company Number: US-ABBVIE-6475711

PATIENT
  Sex: Male

DRUGS (2)
  1. DURYSTA [Suspect]
     Active Substance: BIMATOPROST
     Indication: Glaucoma
     Route: 050
     Dates: start: 202412, end: 202412
  2. DURYSTA [Suspect]
     Active Substance: BIMATOPROST
     Indication: Intraocular pressure test

REACTIONS (2)
  - Trabeculoplasty [Unknown]
  - Intraocular pressure increased [Unknown]

NARRATIVE: CASE EVENT DATE: 20250601
